FAERS Safety Report 7597595-6 (Version None)
Quarter: 2011Q3

REPORT INFORMATION
  Report Type: 
  Country: None (occurrence: None)
  Receive Date: 20110708
  Receipt Date: 20110628
  Transmission Date: 20111222
  Serious: Yes (Hospitalization)
  Sender: FDA-Public Use
  Company Number: IL-ROCHE-786162

PATIENT

DRUGS (9)
  1. ALPHA D3 [Concomitant]
  2. LANTON [Concomitant]
     Indication: DYSPEPSIA
  3. METHOXY POLYETHYLENE GLYCOL-EPOETIN BETA [Suspect]
     Dosage: DOSE: 200
     Route: 042
     Dates: start: 20110512
  4. CALCIUM CARBONATE [Concomitant]
  5. FOLIC ACID [Concomitant]
  6. TRIBEMIN [Concomitant]
  7. CADEX [Concomitant]
     Indication: HYPERTENSION
  8. DIMITONE [Concomitant]
     Indication: HYPERTENSION
  9. NORVASC [Concomitant]
     Indication: HYPERTENSION

REACTIONS (1)
  - CHEST PAIN [None]
